FAERS Safety Report 21665830 (Version 3)
Quarter: 2024Q2

REPORT INFORMATION
  Report Type: Spontaneous
  Country: US (occurrence: US)
  Receive Date: 20221201
  Receipt Date: 20240624
  Transmission Date: 20240716
  Serious: No
  Sender: FDA-Public Use
  Company Number: US-RECORDATI-2022005875

PATIENT

DRUGS (1)
  1. ISTURISA [Suspect]
     Active Substance: OSILODROSTAT PHOSPHATE
     Indication: Product used for unknown indication
     Dosage: UNK

REACTIONS (4)
  - Hyperglycaemia [Unknown]
  - Feeling abnormal [Unknown]
  - Blood corticotrophin increased [Unknown]
  - Disease progression [Recovered/Resolved]
